FAERS Safety Report 10919542 (Version 4)
Quarter: 2015Q2

REPORT INFORMATION
  Report Type: Spontaneous
  Country: US (occurrence: US)
  Receive Date: 20150317
  Receipt Date: 20150520
  Transmission Date: 20150821
  Serious: Yes (Other)
  Sender: FDA-Public Use
  Company Number: US-UCBSA-2015007300

PATIENT
  Age: 36 Year
  Sex: Male
  Weight: 91 kg

DRUGS (6)
  1. PREDNISONE. [Concomitant]
     Active Substance: PREDNISONE
     Indication: PRODUCT USED FOR UNKNOWN INDICATION
     Dosage: WAS PRESCRIBED SEVERAL TIMES OVER THE YEARS
     Dates: start: 20040319
  2. ENTOCORT [Concomitant]
     Active Substance: BUDESONIDE
     Indication: PRODUCT USED FOR UNKNOWN INDICATION
     Dosage: 3 MG 3 DAILY
     Dates: start: 20070219
  3. CIMZIA [Suspect]
     Active Substance: CERTOLIZUMAB PEGOL
     Indication: CROHN^S DISEASE
     Dosage: 400 MG, EV 4 WEEKS CIMZIA 200MG PFS 2/PKG
     Route: 058
     Dates: start: 200911
  4. REMICADE [Concomitant]
     Active Substance: INFLIXIMAB
     Indication: PRODUCT USED FOR UNKNOWN INDICATION
     Dosage: 5 MG/KG, EV 8 WEEKS,
     Dates: start: 20040824
  5. ASACOL [Concomitant]
     Active Substance: MESALAMINE
     Indication: PRODUCT USED FOR UNKNOWN INDICATION
     Dosage: UNK
     Dates: start: 20040405
  6. REMICADE [Concomitant]
     Active Substance: INFLIXIMAB
     Dosage: 10 MG/KG, EV 8 WEEKS
     Dates: start: 2009

REACTIONS (1)
  - Skin cancer [Recovering/Resolving]

NARRATIVE: CASE EVENT DATE: 20131021
